FAERS Safety Report 20428354 (Version 1)
Quarter: 2022Q1

REPORT INFORMATION
  Report Type: Spontaneous
  Country: NL (occurrence: NL)
  Receive Date: 20220204
  Receipt Date: 20220204
  Transmission Date: 20220423
  Serious: Yes (Other)
  Sender: FDA-Public Use
  Company Number: NL-ABBVIE-18S-114-2592270-00

PATIENT
  Age: 69 Year

DRUGS (6)
  1. POLYETHYLENE GLYCOLS [Suspect]
     Active Substance: POLYETHYLENE GLYCOLS
     Indication: Abnormal faeces
     Dosage: UNK
     Route: 065
  2. CARBIDOPA\LEVODOPA [Suspect]
     Active Substance: CARBIDOPA\LEVODOPA
     Indication: Parkinson^s disease
     Dosage: UNK, CONTINUOUS DOSE IS DECREASED WITH 0.2ML TO 2.3ML
     Route: 065
  3. CARBIDOPA\LEVODOPA [Suspect]
     Active Substance: CARBIDOPA\LEVODOPA
     Dosage: UNK, MD 8.5 CD 2.9, ED 1.0
     Route: 065
  4. CARBIDOPA\LEVODOPA [Suspect]
     Active Substance: CARBIDOPA\LEVODOPA
     Dosage: UNK
     Route: 065
     Dates: start: 20181126
  5. CARBIDOPA\LEVODOPA [Suspect]
     Active Substance: CARBIDOPA\LEVODOPA
     Dosage: UNK, MD 8.5, CD 2.8, ED 1.0
     Route: 065
  6. SYMMETREL [Concomitant]
     Active Substance: AMANTADINE HYDROCHLORIDE
     Indication: Parkinson^s disease
     Dosage: 200 MILLIGRAM, ONCE A DAY
     Route: 065

REACTIONS (26)
  - Parkinson^s disease [Not Recovered/Not Resolved]
  - Bradykinesia [Not Recovered/Not Resolved]
  - Parkinsonian gait [Not Recovered/Not Resolved]
  - Paraesthesia [Not Recovered/Not Resolved]
  - Freezing phenomenon [Not Recovered/Not Resolved]
  - Gait disturbance [Not Recovered/Not Resolved]
  - Dyskinesia [Recovering/Resolving]
  - Restlessness [Not Recovered/Not Resolved]
  - Apathy [Not Recovered/Not Resolved]
  - Fatigue [Recovering/Resolving]
  - Muscle rigidity [Not Recovered/Not Resolved]
  - Abnormal dreams [Recovering/Resolving]
  - Emotional disorder [Not Recovered/Not Resolved]
  - Reduced facial expression [Not Recovered/Not Resolved]
  - Faeces hard [Unknown]
  - Stress [Not Recovered/Not Resolved]
  - On and off phenomenon [Not Recovered/Not Resolved]
  - Dysphagia [Not Recovered/Not Resolved]
  - Motor dysfunction [Not Recovered/Not Resolved]
  - Mobility decreased [Not Recovered/Not Resolved]
  - Muscle spasms [Not Recovered/Not Resolved]
  - Faeces soft [Recovered/Resolved]
  - Insomnia [Recovered/Resolved]
  - Weight increased [Recovered/Resolved]
  - Sitting disability [Not Recovered/Not Resolved]
  - Unevaluable event [Not Recovered/Not Resolved]

NARRATIVE: CASE EVENT DATE: 20180101
